FAERS Safety Report 4926006-1 (Version None)
Quarter: 2006Q1

REPORT INFORMATION
  Report Type: 
  Country: None (occurrence: None)
  Receive Date: 20060228
  Receipt Date: 20050722
  Transmission Date: 20060701
  Serious: No
  Sender: FDA-Public Use
  Company Number: US-GLAXOSMITHKLINE-A0567584A

PATIENT
  Age: 16 Year
  Sex: Male
  Weight: 80 kg

DRUGS (2)
  1. LAMICTAL [Suspect]
     Indication: BIPOLAR DISORDER
     Dosage: 25MG UNKNOWN
     Route: 048
     Dates: start: 20050607, end: 20050617
  2. MELATONINA [Concomitant]
     Indication: INSOMNIA
     Dosage: 3MG AT NIGHT

REACTIONS (1)
  - RASH [None]
